FAERS Safety Report 8619035 (Version 4)
Quarter: 2012Q4

REPORT INFORMATION
  Report Type: 
  Country: US (occurrence: US)
  Receive Date: 20120618
  Receipt Date: 20121219
  Transmission Date: 20130627
  Serious: Yes (Hospitalization, Other)
  Sender: FDA-Public Use
  Company Number: US-BAYER-2012-059441

PATIENT
  Age: 54 Year
  Sex: Female
  Weight: 108.84 kg

DRUGS (7)
  1. BETASERON [Suspect]
     Indication: MULTIPLE SCLEROSIS
     Dosage: 0.25 mg, QOD
     Route: 058
     Dates: end: 201207
  2. ADVIL [Concomitant]
     Dosage: 200 mg, UNK
  3. VYTORIN [Concomitant]
     Dosage: 10/40 mg
  4. VYTORIN [Concomitant]
     Dosage: 10/20
  5. AMLODIPINE [Concomitant]
     Dosage: 5 mg, UNK
  6. REBIF [Concomitant]
     Dosage: UNK
     Dates: start: 201208
  7. GLIMEPIRIDE [Concomitant]
     Dosage: 2

REACTIONS (8)
  - Hospitalisation [Recovering/Resolving]
  - Injection site infection [Recovered/Resolved]
  - Injection site reaction [Recovered/Resolved]
  - Influenza [Unknown]
  - Injury associated with device [Recovered/Resolved]
  - Injection site inflammation [Recovered/Resolved]
  - Injection site necrosis [Recovered/Resolved]
  - Multiple sclerosis relapse [None]
